FAERS Safety Report 6005257-1 (Version None)
Quarter: 2008Q4

REPORT INFORMATION
  Report Type: 
  Country: None (occurrence: None)
  Receive Date: 20081216
  Receipt Date: 20071217
  Transmission Date: 20090506
  Serious: No
  Sender: FDA-Public Use
  Company Number: US-AMGEN-KDL255239

PATIENT
  Sex: Male

DRUGS (1)
  1. ENBREL [Suspect]
     Indication: RHEUMATOID ARTHRITIS
     Route: 058
     Dates: start: 20060601

REACTIONS (4)
  - ARTHRALGIA [None]
  - INJECTION SITE PAIN [None]
  - JOINT STIFFNESS [None]
  - JOINT SWELLING [None]
